FAERS Safety Report 4538376-7 (Version None)
Quarter: 2004Q4

REPORT INFORMATION
  Report Type: 
  Country: None (occurrence: None)
  Receive Date: 20041221
  Receipt Date: 20041210
  Transmission Date: 20050328
  Serious: Yes (Life-Threatening)
  Sender: FDA-Public Use
  Company Number: 04H-114-0282962-00

PATIENT
  Age: 71 Year
  Sex: Male

DRUGS (1)
  1. DOBUTAMINE HCL [Suspect]
     Indication: NUCLEAR MAGNETIC RESONANCE IMAGING THORACIC

REACTIONS (2)
  - INFUSION RELATED REACTION [None]
  - VENTRICULAR FIBRILLATION [None]
